FAERS Safety Report 24956475 (Version 1)
Quarter: 2025Q1

REPORT INFORMATION
  Report Type: Report from Study
  Country: OM (occurrence: OM)
  Receive Date: 20250211
  Receipt Date: 20250211
  Transmission Date: 20250409
  Serious: Yes (Death, Other)
  Sender: BAYER HEALTHCARE PHARMACEUTICALS INC.
  Company Number: OM-BAYER-2025A019401

PATIENT
  Age: 59 Year
  Sex: Male

DRUGS (1)
  1. LAROTRECTINIB [Suspect]
     Active Substance: LAROTRECTINIB
     Dates: start: 20240318, end: 202410

REACTIONS (3)
  - Central nervous system lesion [Fatal]
  - Neurological symptom [None]
  - Thrombocytopenia [None]

NARRATIVE: CASE EVENT DATE: 20240101
